FAERS Safety Report 4369219-2 (Version None)
Quarter: 2004Q2

REPORT INFORMATION
  Report Type: 
  Country: None (occurrence: None)
  Receive Date: 20040603
  Receipt Date: 20031006
  Transmission Date: 20050107
  Serious: No
  Sender: FDA-Public Use
  Company Number: US-GLAXOSMITHKLINE-A0429008A

PATIENT

DRUGS (1)
  1. AUGMENTIN XR [Suspect]
     Indication: ILL-DEFINED DISORDER

REACTIONS (2)
  - CANDIDIASIS [None]
  - FUNGAL INFECTION [None]
